FAERS Safety Report 7628771-1 (Version None)
Quarter: 2011Q3

REPORT INFORMATION
  Report Type: 
  Country: None (occurrence: None)
  Receive Date: 20110722
  Receipt Date: 20110712
  Transmission Date: 20111222
  Serious: Yes (Hospitalization)
  Sender: FDA-Public Use
  Company Number: US-BAYER-2011-034785

PATIENT
  Age: 28 Year
  Sex: Female
  Weight: 95.692 kg

DRUGS (7)
  1. YASMIN [Suspect]
     Dosage: UNK
     Dates: start: 20061216
  2. YASMIN [Suspect]
     Indication: POLYCYSTIC OVARIES
     Dosage: UNK
     Dates: start: 20060201, end: 20060301
  3. LISINOPRIL [Concomitant]
     Dosage: 5 MG, QD
     Route: 048
  4. YASMIN [Suspect]
     Indication: CONTRACEPTION
     Dosage: UNK
     Dates: start: 20041201, end: 20051001
  5. PROTONIX [Concomitant]
     Dosage: UNK UNK, QD
  6. GLYBURIDE [Concomitant]
     Dosage: 1.25 OR 2.5 MG
  7. TENUATE DOSPAN [Concomitant]

REACTIONS (11)
  - CHOLELITHIASIS [None]
  - DIVERTICULITIS [None]
  - BILIARY DYSKINESIA [None]
  - DIARRHOEA [None]
  - VOMITING [None]
  - NAUSEA [None]
  - CHOLECYSTITIS ACUTE [None]
  - GASTROENTERITIS [None]
  - GASTRITIS [None]
  - ABDOMINAL PAIN [None]
  - PAIN [None]
